FAERS Safety Report 24092269 (Version 1)
Quarter: 2024Q3

REPORT INFORMATION
  Report Type: Spontaneous
  Country: US (occurrence: US)
  Receive Date: 20240715
  Receipt Date: 20240715
  Transmission Date: 20241016
  Serious: Yes (Other)
  Sender: AMGEN
  Company Number: US-AMGEN-USASP2024135290

PATIENT
  Age: 56 Year
  Sex: Male

DRUGS (2)
  1. PREDNISONE [Suspect]
     Active Substance: PREDNISONE
     Indication: Graft versus host disease in eye
     Dosage: 60 MILLIGRAM
     Route: 048
  2. TACROLIMUS [Concomitant]
     Active Substance: TACROLIMUS
     Indication: Chronic graft versus host disease in eye
     Route: 048

REACTIONS (5)
  - Graft versus host disease [Unknown]
  - Cataract nuclear [Not Recovered/Not Resolved]
  - Nail dystrophy [Unknown]
  - Dry eye [Recovering/Resolving]
  - Cataract subcapsular [Not Recovered/Not Resolved]
